FAERS Safety Report 7534743-8 (Version None)
Quarter: 2011Q2

REPORT INFORMATION
  Report Type: 
  Country: None (occurrence: None)
  Receive Date: 20110609
  Receipt Date: 20110530
  Transmission Date: 20111010
  Serious: Yes (Hospitalization)
  Sender: FDA-Public Use
  Company Number: DE-BRISTOL-MYERS SQUIBB COMPANY-14809537

PATIENT
  Age: 71 Year
  Sex: Male
  Weight: 83 kg

DRUGS (12)
  1. PANTOPRAZOLE [Concomitant]
     Dates: start: 20090909
  2. GLANDOSANE [Concomitant]
     Indication: PROPHYLAXIS
     Dates: start: 20090909
  3. VOMEX A [Concomitant]
     Indication: PROPHYLAXIS
     Dates: start: 20090908, end: 20090909
  4. FRAXIPARINE [Concomitant]
     Indication: PROPHYLAXIS
     Dates: start: 20090908
  5. FOLSAN [Concomitant]
     Indication: PROPHYLAXIS
     Dates: start: 20090921
  6. CETUXIMAB [Suspect]
     Indication: NON-SMALL CELL LUNG CANCER
     Dosage: INDUCTION PHASE-01SEP2009;250MG/M2 WEEKLY.DAY 1,CYCLE 1,LAST DOSE:27OCT09
     Route: 042
     Dates: start: 20090901
  7. CISPLATIN [Suspect]
     Indication: NON-SMALL CELL LUNG CANCER
     Dosage: INDUCTION PHASE-01SEP2009,LAST DOSE:27OCT09
     Route: 042
     Dates: start: 20090901
  8. DELTAJONIN [Concomitant]
     Indication: PROPHYLAXIS
     Dates: start: 20090908, end: 20090909
  9. VITAMIN B-12 [Concomitant]
     Indication: PROPHYLAXIS
     Dates: start: 20090921
  10. TEPILTA [Concomitant]
     Indication: PROPHYLAXIS
     Dates: start: 20090909
  11. ALIMTA [Suspect]
     Indication: NON-SMALL CELL LUNG CANCER
     Dosage: VIAL.INDUCTION PHASE-01SEP2009,LAST DOSE:27OCT09
     Route: 042
     Dates: start: 20090901
  12. PASPERTIN [Concomitant]
     Indication: PROPHYLAXIS
     Dosage: DROP
     Dates: start: 20090909, end: 20090917

REACTIONS (6)
  - NEUTROPENIA [None]
  - RASH [None]
  - THROMBOCYTOPENIA [None]
  - MUCOSAL INFLAMMATION [None]
  - FATIGUE [None]
  - FEBRILE NEUTROPENIA [None]
